FAERS Safety Report 24362679 (Version 1)
Quarter: 2024Q3

REPORT INFORMATION
  Report Type: Spontaneous
  Country: FR (occurrence: FR)
  Receive Date: 20240925
  Receipt Date: 20240925
  Transmission Date: 20241016
  Serious: Yes (Other)
  Sender: Vantive US Healthcare
  Company Number: FR-VANTIVE-2024VAN019882

PATIENT

DRUGS (1)
  1. NUTRINEAL PD4 [Suspect]
     Active Substance: AMINO ACIDS\CALCIUM CHLORIDE\MAGNESIUM CHLORIDE\SODIUM CHLORIDE\SODIUM LACTATE
     Dosage: UNK
     Route: 033

REACTIONS (2)
  - Ultrafiltration failure [Recovered/Resolved]
  - Ultrafiltration failure [Unknown]
